FAERS Safety Report 11230916 (Version 1)
Quarter: 2015Q2

REPORT INFORMATION
  Report Type: Spontaneous
  Country: US (occurrence: None)
  Receive Date: 20150629
  Receipt Date: 20150629
  Transmission Date: 20150821
  Serious: Yes (Life-Threatening)
  Sender: FDA-Public Use
  Company Number: None

PATIENT
  Age: 48 Year
  Sex: Female
  Weight: 72.58 kg

DRUGS (2)
  1. VALERIAN [Concomitant]
     Active Substance: VALERIAN
  2. LEVOTHYROXINE [Suspect]
     Active Substance: LEVOTHYROXINE
     Indication: THYROIDECTOMY
     Dosage: .188 ONCE DAILY TAKEN BY MOUTH
     Route: 048

REACTIONS (3)
  - Hypoaesthesia [None]
  - Somnolence [None]
  - Product quality issue [None]

NARRATIVE: CASE EVENT DATE: 20150625
